FAERS Safety Report 6432642-6 (Version None)
Quarter: 2009Q4

REPORT INFORMATION
  Report Type: 
  Country: None (occurrence: None)
  Receive Date: 20091109
  Receipt Date: 20091105
  Transmission Date: 20100525
  Serious: Yes (Hospitalization)
  Sender: FDA-Public Use
  Company Number: US-ELI_LILLY_AND_COMPANY-US200911001712

PATIENT
  Sex: Female
  Weight: 127 kg

DRUGS (12)
  1. BYETTA [Suspect]
     Indication: TYPE 2 DIABETES MELLITUS
     Dosage: 5 UG, 2/D
     Route: 058
     Dates: start: 20071004, end: 20071101
  2. BYETTA [Suspect]
     Dosage: 10 UG, 2/D
     Route: 058
     Dates: start: 20071107, end: 20091030
  3. METFORMIN HCL [Concomitant]
     Indication: TYPE 2 DIABETES MELLITUS
     Dosage: 300 MG, 2/D
  4. GLIPIZIDE [Concomitant]
     Indication: TYPE 2 DIABETES MELLITUS
     Dosage: 10 MG, 2/D
  5. ACTOS [Concomitant]
     Dosage: 30 MG, DAILY (1/D)
  6. AMITRIPTYLINE [Concomitant]
     Dosage: 75 MG, DAILY (1/D)
  7. LOVAZA [Concomitant]
     Dosage: 1 MG, 2/D
  8. FUROSEMIDE [Concomitant]
     Dosage: 20 MG, UNK
  9. METOPROLOL [Concomitant]
     Dosage: 50 MG, DAILY (1/D)
  10. VYTORIN [Concomitant]
     Dosage: UNK, DAILY (1/D)
  11. METANX [Concomitant]
     Dosage: UNK, 2/D
  12. OMEPRAZOLE [Concomitant]
     Dosage: 20 MG, DAILY (1/D)

REACTIONS (1)
  - PANCREATITIS [None]
